FAERS Safety Report 8617547 (Version 2)
Quarter: 2013Q2

REPORT INFORMATION
  Report Type: Report from Study
  Country: FR (occurrence: FR)
  Receive Date: 20120615
  Receipt Date: 20130611
  Transmission Date: 20140414
  Serious: Yes (Death, Hospitalization, Other)
  Sender: FDA-Public Use
  Company Number: FR-ROCHE-1076233

PATIENT
  Sex: 0

DRUGS (1)
  1. RITUXIMAB [Suspect]
     Indication: SJOGREN^S SYNDROME
     Route: 065

REACTIONS (11)
  - Squamous cell carcinoma of the vulva [Fatal]
  - Paget^s disease of nipple [Fatal]
  - Lung disorder [Unknown]
  - Urticaria [Unknown]
  - Serum sickness-like reaction [Unknown]
  - Angioedema [Unknown]
  - Rash [Unknown]
  - Lung disorder [Unknown]
  - Hypogammaglobulinaemia [Unknown]
  - Drug ineffective [Unknown]
  - Shock [Unknown]
